FAERS Safety Report 11625677 (Version 1)
Quarter: 2015Q4

REPORT INFORMATION
  Report Type: Spontaneous
  Country: US (occurrence: US)
  Receive Date: 20151013
  Receipt Date: 20151013
  Transmission Date: 20160304
  Serious: Yes (Disabling)
  Sender: FDA-Public Use
  Company Number: US-009507513-1510USA004908

PATIENT
  Sex: Female

DRUGS (1)
  1. IMPLANON [Suspect]
     Active Substance: ETONOGESTREL
     Indication: PRODUCT USED FOR UNKNOWN INDICATION
     Dosage: UNK
     Route: 059
     Dates: start: 20120206

REACTIONS (4)
  - Medical device complication [Unknown]
  - Device difficult to use [Unknown]
  - Scar [Unknown]
  - Weight increased [Unknown]

NARRATIVE: CASE EVENT DATE: 20130827
